FAERS Safety Report 8767212 (Version 2)
Quarter: 2012Q4

REPORT INFORMATION
  Report Type: 
  Country: US (occurrence: US)
  Receive Date: 20120904
  Receipt Date: 20120917
  Transmission Date: 20130627
  Serious: Yes (Congenital Anomaly)
  Sender: FDA-Public Use
  Company Number: US-GLAXOSMITHKLINE-A0991642A

PATIENT
  Age: 0 Year
  Sex: Male

DRUGS (4)
  1. PAXIL [Suspect]
     Indication: DEPRESSION
     Dosage: 20MG Unknown
     Route: 064
     Dates: start: 19940912, end: 20030826
  2. ROBITUSSIN [Concomitant]
     Route: 064
  3. UNKNOWN ANTIBIOTICS [Concomitant]
     Route: 064
  4. CLARITIN D [Concomitant]
     Route: 064

REACTIONS (15)
  - Strabismus congenital [Not Recovered/Not Resolved]
  - Gastrointestinal disorder congenital [Unknown]
  - Cryptorchism [Unknown]
  - Congenital eye disorder [Unknown]
  - Macrocephaly [Unknown]
  - Multiple congenital abnormalities [Unknown]
  - Breast hypoplasia [Unknown]
  - Congenital aortic stenosis [Unknown]
  - Aortic valve disease [Unknown]
  - Chordee [Unknown]
  - Optic nerve hypoplasia [Unknown]
  - Retinal disorder [Unknown]
  - Nystagmus [Unknown]
  - Myopia [Unknown]
  - Foetal exposure during pregnancy [Unknown]
